FAERS Safety Report 6729637-1 (Version None)
Quarter: 2010Q2

REPORT INFORMATION
  Report Type: 
  Country: None (occurrence: None)
  Receive Date: 20100512
  Receipt Date: 20100427
  Transmission Date: 20101027
  Serious: Yes (Hospitalization, Other)
  Sender: FDA-Public Use
  Company Number: AUR-APL-2010-01259

PATIENT
  Age: 80 Year
  Sex: Female

DRUGS (7)
  1. ATENOLOL [Suspect]
  2. LISINOPRIL [Suspect]
  3. CLOPIDOGREL BISULFATE [Concomitant]
  4. LEVOTHYROXINE SODIUM [Concomitant]
  5. FUROSEMIDE [Concomitant]
  6. ACETYLASLICYLIC ACID [Concomitant]
  7. VITAMINS [Concomitant]

REACTIONS (3)
  - BREAST CANCER FEMALE [None]
  - MYOCARDIAL INFARCTION [None]
  - STENT PLACEMENT [None]
